FAERS Safety Report 11875410 (Version 1)
Quarter: 2015Q4

REPORT INFORMATION
  Report Type: Spontaneous
  Country: US (occurrence: None)
  Receive Date: 20151228
  Receipt Date: 20151228
  Transmission Date: 20160305
  Serious: No
  Sender: FDA-Public Use
  Company Number: None

PATIENT
  Age: 66 Year
  Sex: Male

DRUGS (1)
  1. POMALYST [Suspect]
     Active Substance: POMALIDOMIDE
     Indication: PLASMA CELL MYELOMA
     Dosage: 4MG?DAILY FOR 21 DAYS ?ORAL
     Route: 048
     Dates: start: 20151020, end: 20151117

REACTIONS (3)
  - Peripheral swelling [None]
  - Back pain [None]
  - Rash [None]

NARRATIVE: CASE EVENT DATE: 20151115
